FAERS Safety Report 7249369-3 (Version None)
Quarter: 2011Q1

REPORT INFORMATION
  Report Type: 
  Country: None (occurrence: None)
  Receive Date: 20110110
  Receipt Date: 20110110
  Transmission Date: 20110831
  Serious: Yes (Other)
  Sender: FDA-Public Use
  Company Number: None

PATIENT
  Age: 41 Year
  Sex: Female
  Weight: 83.0083 kg

DRUGS (1)
  1. ALCOHOL PREP PAD 1 PAD TRIAD [Suspect]
     Indication: INJECTION
     Dosage: 3 DAYS -SO FAR-

REACTIONS (2)
  - PRODUCT QUALITY ISSUE [None]
  - APPLICATION SITE URTICARIA [None]
